FAERS Safety Report 8769714 (Version 4)
Quarter: 2016Q3

REPORT INFORMATION
  Report Type: Spontaneous
  Country: US (occurrence: US)
  Receive Date: 20120905
  Receipt Date: 20160822
  Transmission Date: 20161109
  Serious: Yes (Hospitalization, Other)
  Sender: FDA-Public Use
  Company Number: US-009507513-1208USA010563

PATIENT
  Sex: Female

DRUGS (2)
  1. FOSAMAX [Suspect]
     Active Substance: ALENDRONATE SODIUM
     Indication: OSTEOPENIA
     Dosage: 70 MG, QD
     Route: 048
     Dates: start: 20050929, end: 20070107
  2. BONIVA [Suspect]
     Active Substance: IBANDRONATE SODIUM
     Indication: OSTEOPENIA
     Dosage: 150 MG, UNK
     Route: 048
     Dates: start: 200707, end: 201203

REACTIONS (12)
  - Femur fracture [Unknown]
  - Vitamin D deficiency [Unknown]
  - Osteonecrosis [Unknown]
  - Hypothyroidism [Unknown]
  - Post procedural haematoma [Unknown]
  - Depression [Not Recovered/Not Resolved]
  - Incisional drainage [Unknown]
  - Spinal operation [Unknown]
  - Femur fracture [Unknown]
  - Anxiety [Not Recovered/Not Resolved]
  - Impaired healing [Not Recovered/Not Resolved]
  - Inappropriate schedule of drug administration [Unknown]

NARRATIVE: CASE EVENT DATE: 200509
